FAERS Safety Report 23518289 (Version 1)
Quarter: 2024Q1

REPORT INFORMATION
  Report Type: Spontaneous
  Country: CN (occurrence: CN)
  Receive Date: 20240213
  Receipt Date: 20240213
  Transmission Date: 20240410
  Serious: Yes (Other)
  Sender: FDA-Public Use
  Company Number: CN-DSJP-DSJ-2024-106306

PATIENT
  Age: 58 Year
  Sex: Female
  Weight: 57.5 kg

DRUGS (2)
  1. ENHERTU [Suspect]
     Active Substance: FAM-TRASTUZUMAB DERUXTECAN-NXKI
     Indication: Chemotherapy
     Dosage: 300 MG, ONCE EVERY 1 WK
     Route: 041
     Dates: start: 20240117, end: 20240117
  2. ENHERTU [Suspect]
     Active Substance: FAM-TRASTUZUMAB DERUXTECAN-NXKI
     Indication: Neoplasm malignant

REACTIONS (1)
  - Myelosuppression [Recovering/Resolving]

NARRATIVE: CASE EVENT DATE: 20240126
